FAERS Safety Report 25283669 (Version 8)
Quarter: 2025Q3

REPORT INFORMATION
  Report Type: Spontaneous
  Country: CO (occurrence: CO)
  Receive Date: 20250508
  Receipt Date: 20250818
  Transmission Date: 20251021
  Serious: No
  Sender: PFIZER
  Company Number: CO-PFIZER INC-202500093505

PATIENT
  Age: 53 Year
  Sex: Female

DRUGS (5)
  1. GENOTROPIN [Suspect]
     Active Substance: SOMATROPIN
     Dosage: 0.4 MG, DAILY
     Dates: start: 20231029
  2. MAGNESIUM [Concomitant]
     Active Substance: MAGNESIUM
  3. MELATONIN [Concomitant]
     Active Substance: MELATONIN
  4. CELECOXIB [Concomitant]
     Active Substance: CELECOXIB
  5. ESCITALOPRAM [Concomitant]
     Active Substance: ESCITALOPRAM OXALATE

REACTIONS (3)
  - Device physical property issue [Unknown]
  - Device difficult to use [Unknown]
  - Drug dose omission by device [Unknown]
